FAERS Safety Report 16514473 (Version 1)
Quarter: 2019Q3

REPORT INFORMATION
  Report Type: Other
  Country: US (occurrence: US)
  Receive Date: 20190702
  Receipt Date: 20190702
  Transmission Date: 20191004
  Serious: Yes (Hospitalization)
  Sender: FDA-Public Use
  Company Number: US-RARE DISEASE THERAPEUTICS, INC.-2070192

PATIENT
  Age: 12 Month

DRUGS (1)
  1. ANASCORP [Suspect]
     Active Substance: SCORPION (CENTRUROIDES) IMMUNE FAB2 ANTIVENIN (EQUINE)
     Indication: ARTHROPOD STING

REACTIONS (4)
  - Vomiting [Unknown]
  - Laryngospasm [Unknown]
  - Oxygen saturation decreased [Unknown]
  - Intentional product misuse [Unknown]
